FAERS Safety Report 5500529-9 (Version None)
Quarter: 2007Q4

REPORT INFORMATION
  Report Type: 
  Country: None (occurrence: None)
  Receive Date: 20071029
  Receipt Date: 20071016
  Transmission Date: 20080405
  Serious: Yes (Hospitalization)
  Sender: FDA-Public Use
  Company Number: US-AMGEN-QUU248346

PATIENT
  Sex: Female

DRUGS (2)
  1. ENBREL [Suspect]
     Indication: RHEUMATOID ARTHRITIS
     Route: 058
     Dates: start: 20040617
  2. ARAVA [Concomitant]
     Dates: start: 20010101

REACTIONS (3)
  - KNEE ARTHROPLASTY [None]
  - LOCALISED INFECTION [None]
  - RHEUMATOID ARTHRITIS [None]
